FAERS Safety Report 17878919 (Version 1)
Quarter: 2020Q2

REPORT INFORMATION
  Report Type: Spontaneous
  Country: DE (occurrence: DE)
  Receive Date: 20200610
  Receipt Date: 20200610
  Transmission Date: 20200714
  Serious: Yes (Other)
  Sender: FDA-Public Use
  Company Number: DE-TEVA-2020-DE-1245254

PATIENT
  Age: 53 Year
  Sex: Male

DRUGS (1)
  1. IRBESARTAN-RATIOPHARM 150 MG FILMTABLETTEN [Suspect]
     Active Substance: IRBESARTAN
     Indication: CARDIAC FAILURE
     Dosage: 150 MILLIGRAM DAILY;
     Route: 048
     Dates: start: 2019

REACTIONS (1)
  - Confusional state [Not Recovered/Not Resolved]
